FAERS Safety Report 6370545-6 (Version None)
Quarter: 2009Q3

REPORT INFORMATION
  Report Type: 
  Country: None (occurrence: None)
  Receive Date: 20090923
  Receipt Date: 20090917
  Transmission Date: 20100115
  Serious: Yes (Hospitalization)
  Sender: FDA-Public Use
  Company Number: A0808328A

PATIENT
  Sex: Female
  Weight: 77 kg

DRUGS (6)
  1. SERETIDE [Suspect]
     Indication: BRONCHITIS
     Dosage: 1PUFF TWICE PER DAY
     Route: 055
     Dates: start: 20090820
  2. PREDNISONE [Concomitant]
     Dosage: 2TAB PER DAY
     Dates: start: 20070101
  3. OMEPRAZOLE [Concomitant]
     Dosage: 1TAB THREE TIMES PER DAY
     Dates: start: 20050101
  4. RIVOTRIL [Concomitant]
     Dosage: 1TAB PER DAY
     Dates: start: 20090401
  5. BROMAZEPAM [Concomitant]
     Dosage: .5TAB PER DAY
     Dates: start: 20090601
  6. ALLERGY VACCINE [Concomitant]

REACTIONS (6)
  - ASTHMATIC CRISIS [None]
  - BRONCHITIS [None]
  - HYPERSENSITIVITY [None]
  - PNEUMONIA [None]
  - PYREXIA [None]
  - RHINITIS [None]
